FAERS Safety Report 25555203 (Version 2)
Quarter: 2025Q3

REPORT INFORMATION
  Report Type: Spontaneous
  Country: JP (occurrence: JP)
  Receive Date: 20250715
  Receipt Date: 20250811
  Transmission Date: 20251021
  Serious: Yes (Other)
  Sender: AMGEN
  Company Number: JP-TAKEDA-2025TJP006931

PATIENT
  Age: 7 Decade
  Sex: Male

DRUGS (1)
  1. VECTIBIX [Suspect]
     Active Substance: PANITUMUMAB
     Indication: Colon cancer metastatic
     Route: 041
     Dates: start: 20220701, end: 20250708

REACTIONS (1)
  - Colon cancer metastatic [Unknown]
